FAERS Safety Report 23078009 (Version 1)
Quarter: 2023Q4

REPORT INFORMATION
  Report Type: Spontaneous
  Country: US (occurrence: US)
  Receive Date: 20231018
  Receipt Date: 20231018
  Transmission Date: 20240110
  Serious: No
  Sender: FDA-Public Use
  Company Number: US-ABBVIE-5451983

PATIENT
  Age: 59 Year
  Sex: Male
  Weight: 104.32 kg

DRUGS (8)
  1. HUMIRA [Suspect]
     Active Substance: ADALIMUMAB
     Indication: Ankylosing spondylitis
     Dosage: FORM STRENGTH: 40 MILLIGRAM
     Dates: start: 20230721
  2. VITAMIN D2 [Concomitant]
     Active Substance: ERGOCALCIFEROL
     Indication: Ankylosing spondylitis
  3. DULOXETINE HYDROCHLORIDE [Concomitant]
     Active Substance: DULOXETINE HYDROCHLORIDE
     Indication: Fibromyalgia
  4. CALCIUM [Concomitant]
     Active Substance: CALCIUM
     Indication: Ankylosing spondylitis
  5. PREGABALIN [Concomitant]
     Active Substance: PREGABALIN
     Indication: Pain
  6. TAMSULOSIN HYDROCHLORIDE [Concomitant]
     Active Substance: TAMSULOSIN HYDROCHLORIDE
     Indication: Prostate cancer
  7. PANTOPRAZOLE [Concomitant]
     Active Substance: PANTOPRAZOLE
     Indication: Gastric pH decreased
  8. MELOXICAM [Concomitant]
     Active Substance: MELOXICAM
     Indication: Inflammation

REACTIONS (15)
  - Hyperventilation [Recovered/Resolved]
  - Injection site erythema [Recovering/Resolving]
  - Injection site pain [Recovered/Resolved]
  - Limb discomfort [Not Recovered/Not Resolved]
  - Injection site pain [Recovering/Resolving]
  - Asthma [Recovered/Resolved]
  - Injection site rash [Recovered/Resolved]
  - Injection site pruritus [Recovered/Resolved]
  - Paranasal sinus hypersecretion [Recovering/Resolving]
  - Urticaria [Recovered/Resolved]
  - Urticaria [Recovered/Resolved]
  - Injection site rash [Recovered/Resolved]
  - Pyrexia [Recovered/Resolved]
  - Injection site pruritus [Recovered/Resolved]
  - Injection site scab [Recovering/Resolving]

NARRATIVE: CASE EVENT DATE: 20230901
